FAERS Safety Report 25184496 (Version 1)
Quarter: 2025Q2

REPORT INFORMATION
  Report Type: Spontaneous
  Country: RO (occurrence: RO)
  Receive Date: 20250410
  Receipt Date: 20250410
  Transmission Date: 20250716
  Serious: Yes (Other)
  Sender: PFIZER
  Company Number: RO-PFIZER INC-PV202500041614

PATIENT
  Age: 52 Year
  Sex: Female

DRUGS (4)
  1. LORLATINIB [Suspect]
     Active Substance: LORLATINIB
     Indication: Lung adenocarcinoma
     Dosage: 100 MG, 1X/DAY
     Dates: start: 20241113
  2. ATORVASTATIN CALCIUM [Suspect]
     Active Substance: ATORVASTATIN CALCIUM
  3. EZETIMIBE [Suspect]
     Active Substance: EZETIMIBE
  4. ASPIRIN [Suspect]
     Active Substance: ASPIRIN

REACTIONS (7)
  - Pneumonitis [Unknown]
  - Myocardial ischaemia [Unknown]
  - Arteriosclerosis coronary artery [Unknown]
  - Aortic arteriosclerosis [Unknown]
  - Hypercholesterolaemia [Unknown]
  - Disease recurrence [Unknown]
  - Bundle branch block right [Unknown]

NARRATIVE: CASE EVENT DATE: 20241113
